FAERS Safety Report 9675312 (Version 1)
Quarter: 2013Q4

REPORT INFORMATION
  Report Type: Spontaneous
  Country: ES (occurrence: None)
  Receive Date: 20131105
  Receipt Date: 20131105
  Transmission Date: 20140711
  Serious: Yes (Hospitalization)
  Sender: FDA-Public Use
  Company Number: ES-MACLEODS-PHARMA-000161

PATIENT
  Age: 78 Year
  Sex: Female

DRUGS (2)
  1. LEVOFLOXACIN (LEVOFLOXACIN) [Suspect]
     Indication: HIP ARTHROPLASTY
  2. CLINDAMYCIN (CLINDAMYCIN) [Suspect]
     Indication: HIP ARTHROPLASTY

REACTIONS (1)
  - Acute generalised exanthematous pustulosis [None]
